FAERS Safety Report 8294640-X (Version None)
Quarter: 2012Q2

REPORT INFORMATION
  Report Type: 
  Country: None (occurrence: None)
  Receive Date: 20120418
  Receipt Date: 20110718
  Transmission Date: 20120825
  Serious: No
  Sender: FDA-Public Use
  Company Number: US-ABBOTT-11P-163-0840094-00

PATIENT
  Sex: Male
  Weight: 86 kg

DRUGS (1)
  1. ZEMPLAR [Suspect]
     Indication: RENAL FAILURE CHRONIC
     Dosage: 2 MCG/1ML
     Route: 042
     Dates: start: 20060101

REACTIONS (7)
  - VOMITING [None]
  - FLATULENCE [None]
  - PRODUCT COUNTERFEIT [None]
  - PRODUCT TAMPERING [None]
  - HYPERSENSITIVITY [None]
  - DYSGEUSIA [None]
  - MALAISE [None]
